FAERS Safety Report 12310045 (Version 1)
Quarter: 2016Q2

REPORT INFORMATION
  Report Type: Spontaneous
  Country: US (occurrence: US)
  Receive Date: 20160427
  Receipt Date: 20160427
  Transmission Date: 20160815
  Serious: No
  Sender: FDA-Public Use
  Company Number: US-GLAXOSMITHKLINE-US2016056761

PATIENT
  Sex: Female

DRUGS (1)
  1. ABREVA [Suspect]
     Active Substance: DOCOSANOL
     Indication: ORAL HERPES
     Dosage: UNK

REACTIONS (7)
  - Application site scab [Unknown]
  - Application site reaction [Unknown]
  - Application site haemorrhage [Unknown]
  - Application site pain [Unknown]
  - Application site vesicles [Unknown]
  - Application site erythema [Unknown]
  - Application site ulcer [Unknown]
